FAERS Safety Report 11126867 (Version 1)
Quarter: 2015Q2

REPORT INFORMATION
  Report Type: Spontaneous
  Country: FR (occurrence: FR)
  Receive Date: 20150520
  Receipt Date: 20150520
  Transmission Date: 20150821
  Serious: Yes (Death, Other)
  Sender: FDA-Public Use
  Company Number: PHHY2015FR045225

PATIENT
  Age: 52 Year
  Sex: Male
  Weight: 65 kg

DRUGS (1)
  1. ULTIBRO BREEZHALER [Suspect]
     Active Substance: GLYCOPYRRONIUM\INDACATEROL
     Indication: CHRONIC OBSTRUCTIVE PULMONARY DISEASE
     Dosage: 1 DF, BID
     Route: 055
     Dates: start: 201503, end: 201503

REACTIONS (6)
  - Chronic obstructive pulmonary disease [Fatal]
  - Drug intolerance [Unknown]
  - Hypoxia [Fatal]
  - Asphyxia [Unknown]
  - Burning sensation [Unknown]
  - Bronchospasm [Unknown]

NARRATIVE: CASE EVENT DATE: 201503
